FAERS Safety Report 4312464-2 (Version None)
Quarter: 2004Q1

REPORT INFORMATION
  Report Type: 
  Country: None (occurrence: None)
  Receive Date: 20040305
  Receipt Date: 20031128
  Transmission Date: 20041129
  Serious: Yes (Hospitalization, Other)
  Sender: FDA-Public Use
  Company Number: PHNU2003DE04242

PATIENT
  Age: 21 Year
  Sex: Male
  Weight: 74 kg

DRUGS (3)
  1. CLOZARIL [Suspect]
     Indication: SCHIZOPHRENIA, PARANOID TYPE
     Dosage: 300 MG/DAY
     Route: 048
     Dates: start: 19981101, end: 20011101
  2. CLOZARIL [Suspect]
     Dosage: 600MG/DAY
     Route: 048
     Dates: start: 20010101
  3. BETA BLOCKING AGENTS [Concomitant]
     Dosage: UNKNOWN
     Route: 065

REACTIONS (10)
  - APPENDICECTOMY [None]
  - ARRHYTHMIA [None]
  - HERNIA REPAIR [None]
  - INCISIONAL HERNIA [None]
  - LAPAROTOMY [None]
  - OVERWEIGHT [None]
  - POSTOPERATIVE ILEUS [None]
  - SINUS TACHYCARDIA [None]
  - SOMNOLENCE [None]
  - TREATMENT NONCOMPLIANCE [None]
